FAERS Safety Report 19176018 (Version 3)
Quarter: 2021Q3

REPORT INFORMATION
  Report Type: Report from Study
  Country: US (occurrence: US)
  Receive Date: 20210423
  Receipt Date: 20210708
  Transmission Date: 20211014
  Serious: No
  Sender: FDA-Public Use
  Company Number: US-KYOWAKIRIN-2021BKK006124

PATIENT

DRUGS (2)
  1. POTELIGEO [Suspect]
     Active Substance: MOGAMULIZUMAB-KPKC
     Dosage: UNK, 1X/2 WEEKS
     Route: 065
     Dates: start: 2021
  2. POTELIGEO [Suspect]
     Active Substance: MOGAMULIZUMAB-KPKC
     Indication: CUTANEOUS T-CELL LYMPHOMA
     Dosage: UNK, 1X/2 WEEKS
     Route: 065
     Dates: start: 20200106, end: 2021

REACTIONS (5)
  - Back pain [Recovering/Resolving]
  - Pelvic deformity [Recovering/Resolving]
  - Product prescribing error [Unknown]
  - Spinal osteoarthritis [Recovering/Resolving]
  - Pain [Recovering/Resolving]

NARRATIVE: CASE EVENT DATE: 2021
